FAERS Safety Report 8942086 (Version 1)
Quarter: 2012Q4

REPORT INFORMATION
  Report Type: 
  Country: US (occurrence: US)
  Receive Date: 20121130
  Receipt Date: 20121130
  Transmission Date: 20130627
  Serious: Yes (Hospitalization)
  Sender: FDA-Public Use
  Company Number: US-GLAXOSMITHKLINE-A1003081A

PATIENT
  Age: 62 Year
  Sex: Male

DRUGS (16)
  1. VALTREX [Suspect]
     Indication: GENITAL HERPES
     Dosage: 1G Per day
     Route: 048
     Dates: start: 1996
  2. PRAVASTATIN [Concomitant]
  3. TRILIPIX [Concomitant]
  4. AMLODIPINE [Concomitant]
  5. SULFAMETHOXAZOLE/TRIMETHOPRIM [Concomitant]
  6. METHOCARBAMOL [Concomitant]
  7. METOPROLOL [Concomitant]
  8. LYSINE [Concomitant]
  9. METFORMIN [Concomitant]
  10. CRESTOR [Concomitant]
  11. ASPIRIN [Concomitant]
  12. FISH OIL [Concomitant]
  13. FLAXSEED [Concomitant]
  14. POTASSIUM [Concomitant]
  15. MAGNESIUM [Concomitant]
  16. MELATONIN [Concomitant]

REACTIONS (8)
  - Staphylococcal infection [Unknown]
  - Herpes virus infection [Not Recovered/Not Resolved]
  - Oral candidiasis [Recovered/Resolved]
  - Genital herpes [Not Recovered/Not Resolved]
  - Oral herpes [Not Recovered/Not Resolved]
  - Skin lesion [Not Recovered/Not Resolved]
  - Drug resistance [Unknown]
  - Off label use [Unknown]
